FAERS Safety Report 10183478 (Version 1)
Quarter: 2014Q2

REPORT INFORMATION
  Report Type: Spontaneous
  Country: BR (occurrence: BR)
  Receive Date: 20140520
  Receipt Date: 20140520
  Transmission Date: 20141212
  Serious: Yes (Other)
  Sender: FDA-Public Use
  Company Number: BR-JNJFOC-20140509268

PATIENT
  Age: 52 Year
  Sex: Female
  Weight: 71 kg

DRUGS (9)
  1. REMICADE [Suspect]
     Indication: RHEUMATOID ARTHRITIS
     Route: 042
     Dates: start: 2013, end: 20140306
  2. METHOTREXATE [Concomitant]
     Indication: RHEUMATOID ARTHRITIS
     Route: 065
  3. PREDNISONE [Concomitant]
     Indication: RHEUMATOID ARTHRITIS
     Route: 065
  4. FOLIC ACID [Concomitant]
     Indication: RHEUMATOID ARTHRITIS
     Route: 065
  5. OMEPRAZOLE [Concomitant]
     Indication: GASTRIC DISORDER
     Route: 065
  6. LOSARTAN [Concomitant]
     Indication: BLOOD CHOLESTEROL INCREASED
     Route: 065
  7. HYDROCHLOROTHIAZIDE [Concomitant]
     Indication: HYPERTENSION
     Route: 065
  8. SIMVASTATIN [Concomitant]
     Indication: HYPERTENSION
     Route: 065
  9. HYDRALAZINE [Concomitant]
     Indication: HYPERTENSION
     Route: 065

REACTIONS (1)
  - Breast cancer [Unknown]
